FAERS Safety Report 8525889-6 (Version None)
Quarter: 2012Q3

REPORT INFORMATION
  Report Type: 
  Country: None (occurrence: None)
  Receive Date: 20120720
  Receipt Date: 20120712
  Transmission Date: 20120928
  Serious: Yes (Hospitalization)
  Sender: FDA-Public Use
  Company Number: US-ROXANE LABORATORIES, INC.-2012-RO-01542RO

PATIENT
  Age: 63 Year
  Sex: Male

DRUGS (2)
  1. GALANTAMINE HYDROBROMIDE [Suspect]
  2. DONEPEZIL HCL [Suspect]

REACTIONS (1)
  - POST-TRAUMATIC STRESS DISORDER [None]
